FAERS Safety Report 20063780 (Version 1)
Quarter: 2021Q4

REPORT INFORMATION
  Report Type: Spontaneous
  Country: US (occurrence: None)
  Receive Date: 20211112
  Receipt Date: 20211112
  Transmission Date: 20220303
  Serious: No
  Sender: FDA-Public Use
  Company Number: None

PATIENT
  Age: 66 Year
  Sex: Female
  Weight: 102.15 kg

DRUGS (9)
  1. ROPIVACAINE [Suspect]
     Active Substance: ROPIVACAINE
     Indication: Nerve block
     Dosage: OTHER FREQUENCY : ONCE;?OTHER ROUTE : RT ADDUCTOR CANAL BLOCK;?
     Route: 050
     Dates: start: 20211111, end: 20211111
  2. Licocaine 1% [Concomitant]
     Dates: start: 20211111, end: 20211111
  3. KETOROLAC [Concomitant]
     Active Substance: KETOROLAC TROMETHAMINE
     Dates: start: 20211111, end: 20211111
  4. DEPO-MEDROL [Concomitant]
     Active Substance: METHYLPREDNISOLONE ACETATE
     Dates: start: 20211111, end: 20211111
  5. EPINEPHRINE [Concomitant]
     Active Substance: EPINEPHRINE
     Dates: start: 20211111, end: 20211111
  6. MORPHINE [Concomitant]
     Active Substance: MORPHINE
     Dates: start: 20211111, end: 20211111
  7. PROPOFOL [Concomitant]
     Active Substance: PROPOFOL
     Dates: start: 20211111, end: 20211111
  8. TRANEXAMIC ACID [Concomitant]
     Active Substance: TRANEXAMIC ACID
     Dates: start: 20211111, end: 20211111
  9. FENTANYL [Concomitant]
     Active Substance: FENTANYL
     Dates: start: 20211111, end: 20211111

REACTIONS (2)
  - Tremor [None]
  - Seizure [None]

NARRATIVE: CASE EVENT DATE: 20211111
